FAERS Safety Report 6639474-4 (Version None)
Quarter: 2010Q1

REPORT INFORMATION
  Report Type: 
  Country: None (occurrence: None)
  Receive Date: 20100318
  Receipt Date: 20100304
  Transmission Date: 20100710
  Serious: Yes (Hospitalization, Other)
  Sender: FDA-Public Use
  Company Number: BR-RANBAXY-2010RR-32441

PATIENT
  Age: 78 Year
  Sex: Female

DRUGS (3)
  1. SERTRALINE HCL [Suspect]
     Indication: DEPRESSION
     Dosage: 50 MG, UNK
  2. SERTRALINE HCL [Suspect]
     Dosage: 100 MG, UNK
  3. VENLAFAXINE [Concomitant]

REACTIONS (1)
  - MOUTH ULCERATION [None]
